FAERS Safety Report 15227465 (Version 1)
Quarter: 2018Q3

REPORT INFORMATION
  Report Type: Spontaneous
  Country: DK (occurrence: DK)
  Receive Date: 20180801
  Receipt Date: 20180801
  Transmission Date: 20181010
  Serious: Yes (Other)
  Sender: FDA-Public Use
  Company Number: DK-EISAI MEDICAL RESEARCH-EC-2018-043332

PATIENT
  Age: 59 Year
  Sex: Female

DRUGS (1)
  1. LENVIMA [Suspect]
     Active Substance: LENVATINIB
     Indication: METASTASES TO LYMPH NODES
     Route: 048
     Dates: start: 201612

REACTIONS (2)
  - Product use in unapproved indication [Not Recovered/Not Resolved]
  - Retroperitoneal fibrosis [Not Recovered/Not Resolved]

NARRATIVE: CASE EVENT DATE: 2018
